FAERS Safety Report 21906355 (Version 2)
Quarter: 2023Q1

REPORT INFORMATION
  Report Type: Spontaneous
  Country: US (occurrence: US)
  Receive Date: 20230125
  Receipt Date: 20230125
  Transmission Date: 20230418
  Serious: No
  Sender: FDA-Public Use
  Company Number: US-PFIZER INC-202300024159

PATIENT
  Age: 56 Year
  Sex: Female
  Weight: 63.5 kg

DRUGS (4)
  1. ESTRING [Suspect]
     Active Substance: ESTRADIOL
     Indication: Atrophic vulvovaginitis
     Dosage: 2 MG, EVERY 3 MONTHS (INSERTED VAGINALLY ONCE EVERY 90 DAYS)
     Route: 067
     Dates: start: 202210
  2. ESTRING [Suspect]
     Active Substance: ESTRADIOL
     Indication: Hot flush
  3. ESTRING [Suspect]
     Active Substance: ESTRADIOL
     Indication: Night sweats
  4. PROGESTERONE [Concomitant]
     Active Substance: PROGESTERONE
     Indication: Insomnia
     Dosage: 200 MG, 1X/DAY
     Dates: start: 202210

REACTIONS (2)
  - Therapeutic response unexpected [Unknown]
  - Circumstance or information capable of leading to medication error [Unknown]
